FAERS Safety Report 4517847-3 (Version None)
Quarter: 2004Q4

REPORT INFORMATION
  Report Type: 
  Country: None (occurrence: None)
  Receive Date: 20041203
  Receipt Date: 20041124
  Transmission Date: 20050328
  Serious: Yes (Hospitalization, Other)
  Sender: FDA-Public Use
  Company Number: US-JNJFOC-20041106368

PATIENT
  Age: 66 Year
  Sex: Female
  Weight: 71.5 kg

DRUGS (4)
  1. DOXIL [Suspect]
     Indication: MULTIPLE MYELOMA
     Route: 042
  2. VELCADE [Suspect]
     Indication: MULTIPLE MYELOMA
     Dosage: 1.3MG/M2, INTRAVENOUS, DAYS 1,4, 8 AND 11, EVERY 21 DAYS
     Route: 042
     Dates: start: 20040917
  3. INHALER [Concomitant]
  4. ZOLOFT [Concomitant]
     Indication: DEPRESSION

REACTIONS (13)
  - ATELECTASIS [None]
  - CARDIOMEGALY [None]
  - CHRONIC OBSTRUCTIVE AIRWAYS DISEASE EXACERBATED [None]
  - COR PULMONALE [None]
  - EJECTION FRACTION DECREASED [None]
  - FATIGUE [None]
  - HYPOXIA [None]
  - OEDEMA PERIPHERAL [None]
  - PERICARDIAL EFFUSION [None]
  - PLEURAL EFFUSION [None]
  - PULMONARY HYPERTENSION [None]
  - TRICUSPID VALVE INCOMPETENCE [None]
  - WEIGHT INCREASED [None]
